FAERS Safety Report 8314144-5 (Version None)
Quarter: 2012Q2

REPORT INFORMATION
  Report Type: 
  Country: None (occurrence: None)
  Receive Date: 20120424
  Receipt Date: 20120409
  Transmission Date: 20120825
  Serious: Yes (Other)
  Sender: FDA-Public Use
  Company Number: 2012SP020765

PATIENT

DRUGS (1)
  1. DESOGESTREL AND ETHINYL ESTRADIOL [Suspect]

REACTIONS (1)
  - CONVULSION [None]
